FAERS Safety Report 4464727-8 (Version None)
Quarter: 2004Q3

REPORT INFORMATION
  Report Type: 
  Country: None (occurrence: None)
  Receive Date: 20040929
  Receipt Date: 20040914
  Transmission Date: 20050211
  Serious: Yes (Other)
  Sender: FDA-Public Use
  Company Number: USA040155823

PATIENT
  Age: 11 Year
  Sex: Male
  Weight: 32 kg

DRUGS (6)
  1. STRATTERA [Suspect]
     Indication: ATTENTION DEFICIT/HYPERACTIVITY DISORDER
     Dosage: 25 MG/L DAY
     Dates: start: 20031116, end: 20040105
  2. PROZAC [Suspect]
     Indication: ANXIETY
     Dosage: 10 MG/L IN THE MORNING
     Dates: start: 20031001
  3. ADDERALL 10 [Concomitant]
  4. DEPAKOTE [Concomitant]
  5. CLONIDINE HCL [Concomitant]
  6. METADATE (METHYLPHENIDATE) [Concomitant]

REACTIONS (17)
  - ABNORMAL BEHAVIOUR [None]
  - ANXIETY [None]
  - CHEST PAIN [None]
  - DECREASED APPETITE [None]
  - EMOTIONAL DISORDER [None]
  - HEART RATE INCREASED [None]
  - INSOMNIA [None]
  - MENTAL IMPAIRMENT [None]
  - MOOD ALTERED [None]
  - NIGHTMARE [None]
  - PANIC ATTACK [None]
  - POLLAKIURIA [None]
  - PSYCHOMOTOR HYPERACTIVITY [None]
  - RESPIRATORY RATE INCREASED [None]
  - THERAPY NON-RESPONDER [None]
  - VENTRICULAR HYPERTROPHY [None]
  - WEIGHT INCREASED [None]
